FAERS Safety Report 18949636 (Version 1)
Quarter: 2021Q1

REPORT INFORMATION
  Report Type: Spontaneous
  Country: US (occurrence: US)
  Receive Date: 20210227
  Receipt Date: 20210227
  Transmission Date: 20210420
  Serious: No
  Sender: FDA-Public Use
  Company Number: US-ROCHE-2599258

PATIENT
  Sex: Female

DRUGS (15)
  1. CALCIUM+D3 [Concomitant]
     Active Substance: CALCIUM\CHOLECALCIFEROL
  2. CLONAZEPAM. [Concomitant]
     Active Substance: CLONAZEPAM
  3. ISOSORBIDE MONONITRATE ER [Concomitant]
     Active Substance: ISOSORBIDE MONONITRATE
  4. ENALAPRIL MALEATE. [Concomitant]
     Active Substance: ENALAPRIL MALEATE
  5. NIACIN. [Concomitant]
     Active Substance: NIACIN
  6. ALBUTEROL SULFATE. [Concomitant]
     Active Substance: ALBUTEROL SULFATE
  7. BIOTIN [Concomitant]
     Active Substance: BIOTIN
  8. RESTASIS [Concomitant]
     Active Substance: CYCLOSPORINE
  9. ZYRTEC [Concomitant]
     Active Substance: CETIRIZINE HYDROCHLORIDE
  10. XOLAIR [Suspect]
     Active Substance: OMALIZUMAB
     Indication: BACK PAIN
     Dosage: VIAL
     Route: 058
     Dates: start: 20190417
  11. MONTELUCAST [Concomitant]
     Active Substance: MONTELUKAST SODIUM
  12. OCUVITE [Concomitant]
     Active Substance: VITAMINS
  13. WIXELA INHUB [Concomitant]
     Active Substance: FLUTICASONE PROPIONATE\SALMETEROL XINAFOATE
  14. VITAMIN B1 [Concomitant]
     Active Substance: THIAMINE HYDROCHLORIDE
  15. VITAMIN D3 [Concomitant]
     Active Substance: CHOLECALCIFEROL

REACTIONS (3)
  - Intentional product use issue [Unknown]
  - No adverse event [Unknown]
  - Off label use [Unknown]
